FAERS Safety Report 7508713-X (Version None)
Quarter: 2011Q2

REPORT INFORMATION
  Report Type: 
  Country: None (occurrence: None)
  Receive Date: 20110527
  Receipt Date: 20100812
  Transmission Date: 20111010
  Serious: No
  Sender: FDA-Public Use
  Company Number: A0877543A

PATIENT
  Age: 52 Year
  Sex: Female

DRUGS (2)
  1. VENTOLIN [Suspect]
     Dosage: 2PUFF FOUR TIMES PER DAY
     Route: 055
     Dates: start: 20100810, end: 20100811
  2. AMOXICILLIN [Concomitant]

REACTIONS (4)
  - DYSPNOEA [None]
  - PARAESTHESIA ORAL [None]
  - RASH [None]
  - DRUG INEFFECTIVE [None]
